FAERS Safety Report 9364139 (Version 1)
Quarter: 2013Q2

REPORT INFORMATION
  Report Type: Spontaneous
  Country: CA (occurrence: CA)
  Receive Date: 20130624
  Receipt Date: 20130624
  Transmission Date: 20140414
  Serious: Yes (Hospitalization, Other)
  Sender: FDA-Public Use
  Company Number: CA-NAPPMUNDI-CAN-2013-0004239

PATIENT
  Age: 19 Year
  Sex: Male

DRUGS (9)
  1. DILAUDID [Suspect]
     Indication: PRODUCT USED FOR UNKNOWN INDICATION
     Route: 042
  2. OXYCONTIN TABLETS [Suspect]
     Indication: PRODUCT USED FOR UNKNOWN INDICATION
  3. MORPHINE SULFATE [Suspect]
     Indication: PRODUCT USED FOR UNKNOWN INDICATION
  4. SLEEPING PILLS [Suspect]
     Indication: PRODUCT USED FOR UNKNOWN INDICATION
  5. PERCOCET /00867901/ [Suspect]
     Indication: PRODUCT USED FOR UNKNOWN INDICATION
  6. RITALIN [Suspect]
     Indication: PRODUCT USED FOR UNKNOWN INDICATION
  7. COCAINE [Suspect]
     Indication: PRODUCT USED FOR UNKNOWN INDICATION
  8. METHYLENEDIOXYMETHAMPHETAMINE [Suspect]
     Indication: PRODUCT USED FOR UNKNOWN INDICATION
  9. MARIJUANA [Suspect]
     Indication: PRODUCT USED FOR UNKNOWN INDICATION

REACTIONS (9)
  - Overdose [Unknown]
  - Drug dependence [Unknown]
  - Substance abuse [Unknown]
  - Jaundice [Unknown]
  - Oedema peripheral [Unknown]
  - Liver injury [Unknown]
  - Infection [Unknown]
  - Mobility decreased [Unknown]
  - Euphoric mood [Unknown]
